FAERS Safety Report 18750969 (Version 1)
Quarter: 2021Q1

REPORT INFORMATION
  Report Type: Other
  Country: US (occurrence: US)
  Receive Date: 20210118
  Receipt Date: 20210118
  Transmission Date: 20210419
  Serious: No
  Sender: FDA-Public Use
  Company Number: US-ROCHE-2748784

PATIENT
  Age: 53 Year
  Sex: Female
  Weight: 86.26 kg

DRUGS (15)
  1. OCREVUS [Suspect]
     Active Substance: OCRELIZUMAB
     Indication: RELAPSING-REMITTING MULTIPLE SCLEROSIS
     Dosage: DATE OF TREATMENT: 11/DEC/2017, 11/JUN/2018, 28/DEC/2018, 28/JUN/2019, 27/DEC/2019, 26/JUN/2020 AND
     Route: 042
     Dates: start: 20171221
  2. VITAMIN D3 [Concomitant]
     Active Substance: CHOLECALCIFEROL
     Indication: VITAMIN D DECREASED
     Dosage: 125 MCG
     Route: 048
  3. FLEXERIL [Concomitant]
     Active Substance: CYCLOBENZAPRINE HYDROCHLORIDE
     Indication: MUSCLE SPASMS
     Route: 048
     Dates: start: 20190314, end: 20200716
  4. OCREVUS [Suspect]
     Active Substance: OCRELIZUMAB
     Indication: MULTIPLE SCLEROSIS
  5. PAXIL [Concomitant]
     Active Substance: PAROXETINE HYDROCHLORIDE
     Dosage: TOTAL DOSE 30 MG
     Route: 048
  6. VITAMIN B COMPLEX [Concomitant]
     Active Substance: CYANOCOBALAMIN\DEXPANTHENOL\NIACINAMIDE\PYRIDOXINE HYDROCHLORIDE\RIBOFLAVIN 5^-PHOSPHATE SODIUM\THIAMINE HYDROCHLORIDE\VITAMIN B COMPLEX
     Route: 048
  7. MICRONOR [Concomitant]
     Active Substance: NORETHINDRONE
     Route: 048
  8. TECFIDERA [Concomitant]
     Active Substance: DIMETHYL FUMARATE
  9. TRIAMCINOLONE [Concomitant]
     Active Substance: TRIAMCINOLONE
     Indication: ECZEMA
  10. ADVIL [Concomitant]
     Active Substance: IBUPROFEN
     Route: 048
  11. PHENERGAN [Concomitant]
     Active Substance: PROMETHAZINE HYDROCHLORIDE
  12. TYSABRI [Concomitant]
     Active Substance: NATALIZUMAB
  13. AUBAGIO [Concomitant]
     Active Substance: TERIFLUNOMIDE
  14. SYMMETREL [Concomitant]
     Active Substance: AMANTADINE HYDROCHLORIDE
     Route: 048
     Dates: start: 20200819
  15. LEMTRADA [Concomitant]
     Active Substance: ALEMTUZUMAB

REACTIONS (2)
  - Urine odour abnormal [Not Recovered/Not Resolved]
  - Oral herpes [Not Recovered/Not Resolved]

NARRATIVE: CASE EVENT DATE: 20201218
